FAERS Safety Report 7456446-0 (Version None)
Quarter: 2011Q2

REPORT INFORMATION
  Report Type: 
  Country: None (occurrence: None)
  Receive Date: 20110503
  Receipt Date: 20110217
  Transmission Date: 20111010
  Serious: No
  Sender: FDA-Public Use
  Company Number: US-JNJFOC-20110205650

PATIENT
  Sex: Male

DRUGS (2)
  1. LUNESTA [Concomitant]
     Indication: SLEEP DISORDER THERAPY
     Route: 048
  2. INVEGA SUSTENNA [Suspect]
     Indication: SCHIZOPHRENIA
     Dosage: 234 MG + 39 MG
     Route: 030

REACTIONS (3)
  - INCORRECT DOSE ADMINISTERED [None]
  - PRODUCT QUALITY ISSUE [None]
  - OVERDOSE [None]
